FAERS Safety Report 15247521 (Version 3)
Quarter: 2020Q2

REPORT INFORMATION
  Report Type: Spontaneous
  Country: US (occurrence: US)
  Receive Date: 20180807
  Receipt Date: 20200624
  Transmission Date: 20200713
  Serious: Yes (Other)
  Sender: FDA-Public Use
  Company Number: US-BRISTOL-MYERS SQUIBB COMPANY-BMS-2018-070994

PATIENT
  Sex: Male
  Weight: 81.63 kg

DRUGS (1)
  1. OPDIVO [Suspect]
     Active Substance: NIVOLUMAB
     Indication: BRAIN NEOPLASM
     Dosage: UNK, Q2WK
     Route: 065
     Dates: start: 201801

REACTIONS (2)
  - Brain oedema [Unknown]
  - Intentional product use issue [Unknown]
